FAERS Safety Report 10541417 (Version 1)
Quarter: 2014Q4

REPORT INFORMATION
  Report Type: Report from Study
  Country: FR (occurrence: FR)
  Receive Date: 20141024
  Receipt Date: 20141024
  Transmission Date: 20150529
  Serious: Yes (Other)
  Sender: FDA-Public Use
  Company Number: FR-AMGEN-FRACT2014080386

PATIENT
  Age: 45 Year
  Sex: Female
  Weight: 55 kg

DRUGS (5)
  1. PANITUMUMAB [Suspect]
     Active Substance: PANITUMUMAB
     Indication: OESOPHAGEAL ADENOCARCINOMA
     Dosage: 320 MG, CYCLICAL
     Route: 042
     Dates: start: 20130523, end: 20130523
  2. 5 FU [Concomitant]
     Active Substance: FLUOROURACIL
     Indication: OESOPHAGEAL ADENOCARCINOMA
     Dosage: 650 MG, CYCLICAL
     Route: 040
     Dates: start: 20130523
  3. OXALIPLATINE [Concomitant]
     Active Substance: OXALIPLATIN
     Indication: OESOPHAGEAL ADENOCARCINOMA
     Dosage: 135 MG, CYCLICAL
     Route: 042
     Dates: start: 20130523
  4. FOLIC ACID. [Concomitant]
     Active Substance: FOLIC ACID
     Indication: OESOPHAGEAL ADENOCARCINOMA
     Dosage: 644 MG, CYCLICAL
     Route: 042
     Dates: start: 20130523
  5. 5 FU [Concomitant]
     Active Substance: FLUOROURACIL
     Dosage: 3850 MG, CYCLICAL
     Route: 042
     Dates: start: 20130523

REACTIONS (1)
  - Rash [Recovered/Resolved]

NARRATIVE: CASE EVENT DATE: 201305
